FAERS Safety Report 20644152 (Version 1)
Quarter: 2022Q1

REPORT INFORMATION
  Report Type: Spontaneous
  Country: US (occurrence: US)
  Receive Date: 20220328
  Receipt Date: 20220328
  Transmission Date: 20220423
  Serious: No
  Sender: FDA-Public Use
  Company Number: US-PFIZER INC-2021641079

PATIENT
  Age: 67 Year
  Sex: Female
  Weight: 56.7 kg

DRUGS (1)
  1. XANAX [Suspect]
     Active Substance: ALPRAZOLAM
     Indication: Anxiety
     Dosage: 2 MG, 3X/DAY
     Route: 048

REACTIONS (3)
  - Drug ineffective [Unknown]
  - Counterfeit product administered [Unknown]
  - Prescribed overdose [Unknown]
